FAERS Safety Report 10455418 (Version 2)
Quarter: 2014Q4

REPORT INFORMATION
  Report Type: Spontaneous
  Country: US (occurrence: US)
  Receive Date: 20140916
  Receipt Date: 20141028
  Transmission Date: 20150528
  Serious: Yes (Other)
  Sender: FDA-Public Use
  Company Number: US-AMGEN-USASP2014069979

PATIENT
  Age: 61 Year
  Sex: Female

DRUGS (1)
  1. ENBREL [Suspect]
     Active Substance: ETANERCEPT
     Indication: RHEUMATOID ARTHRITIS
     Dosage: 50 MG, QWK
     Route: 065
     Dates: start: 20001228

REACTIONS (7)
  - Disorientation [Recovered/Resolved]
  - Muscular weakness [Recovered/Resolved]
  - Bone disorder [Recovered/Resolved]
  - Bedridden [Recovered/Resolved]
  - Influenza [Recovered/Resolved]
  - Drug effect decreased [Recovered/Resolved]
  - Dizziness [Recovered/Resolved]
